FAERS Safety Report 12700830 (Version 4)
Quarter: 2016Q4

REPORT INFORMATION
  Report Type: Spontaneous
  Country: US (occurrence: US)
  Receive Date: 20160830
  Receipt Date: 20161208
  Transmission Date: 20170207
  Serious: No
  Sender: FDA-Public Use
  Company Number: US-009507513-1608USA008470

PATIENT
  Age: 36 Year
  Sex: Female
  Weight: 83.45 kg

DRUGS (1)
  1. PREGNYL [Suspect]
     Active Substance: CHORIOGONADOTROPIN ALFA
     Indication: OVULATION INDUCTION
     Dosage: 5000 U ONCE
     Dates: start: 20160811

REACTIONS (1)
  - Anovulatory cycle [Recovered/Resolved with Sequelae]

NARRATIVE: CASE EVENT DATE: 20160811
